FAERS Safety Report 6970707-0 (Version None)
Quarter: 2010Q3

REPORT INFORMATION
  Report Type: 
  Country: None (occurrence: None)
  Receive Date: 20100908
  Receipt Date: 20100827
  Transmission Date: 20110219
  Serious: Yes (Hospitalization, Other)
  Sender: FDA-Public Use
  Company Number: US-AMGEN-QUU431994

PATIENT
  Sex: Male
  Weight: 75.2 kg

DRUGS (6)
  1. NPLATE [Suspect]
     Indication: IDIOPATHIC THROMBOCYTOPENIC PURPURA
     Route: 058
     Dates: start: 20081212, end: 20100703
  2. PRILOSEC [Concomitant]
  3. ASCORBIC ACID [Concomitant]
  4. VITAMIN B-12 [Concomitant]
  5. IRON SULFATETHIAMIN COMPOUND TAB [Concomitant]
  6. NORCO [Concomitant]

REACTIONS (8)
  - ARTERIOVENOUS MALFORMATION [None]
  - ATELECTASIS [None]
  - COLON ADENOMA [None]
  - EPISTAXIS [None]
  - GASTROINTESTINAL HAEMORRHAGE [None]
  - INCISIONAL DRAINAGE [None]
  - THROMBOCYTOPENIA [None]
  - ULCER [None]
